FAERS Safety Report 14827970 (Version 3)
Quarter: 2018Q2

REPORT INFORMATION
  Report Type: Report from Study
  Country: CA (occurrence: CA)
  Receive Date: 20180430
  Receipt Date: 20180509
  Transmission Date: 20180711
  Serious: Yes (Hospitalization, Other)
  Sender: FDA-Public Use
  Company Number: CA-GLAXOSMITHKLINE-CA2018GSK074836

PATIENT
  Age: 52 Year
  Sex: Female

DRUGS (2)
  1. MEPOLIZUMAB [Suspect]
     Active Substance: MEPOLIZUMAB
     Dosage: 100 MG, Z
     Route: 042
  2. MEPOLIZUMAB [Suspect]
     Active Substance: MEPOLIZUMAB
     Indication: ASTHMA
     Dosage: 100 MG, Z
     Route: 042

REACTIONS (11)
  - Nephrolithiasis [Unknown]
  - Hypotension [Unknown]
  - Nasal congestion [Recovered/Resolved]
  - Ureteral stent insertion [Unknown]
  - Chest discomfort [Recovered/Resolved]
  - Balance disorder [Unknown]
  - Headache [Recovered/Resolved]
  - Vomiting [Unknown]
  - Dizziness [Unknown]
  - Flank pain [Unknown]
  - Lethargy [Unknown]

NARRATIVE: CASE EVENT DATE: 20180330
